FAERS Safety Report 8884569 (Version 4)
Quarter: 2013Q3

REPORT INFORMATION
  Report Type: Report from Study
  Country: US (occurrence: US)
  Receive Date: 20121104
  Receipt Date: 20130719
  Transmission Date: 20140515
  Serious: Yes (Other)
  Sender: FDA-Public Use
  Company Number: US-BRISTOL-MYERS SQUIBB COMPANY-17069543

PATIENT
  Age: 80 Year
  Sex: Male

DRUGS (10)
  1. HUMALOG [Suspect]
     Indication: TYPE 2 DIABETES MELLITUS
  2. LANTUS [Suspect]
     Indication: TYPE 2 DIABETES MELLITUS
  3. PLACEBO [Suspect]
     Indication: TYPE 2 DIABETES MELLITUS
     Dates: start: 20100611, end: 20111219
  4. NASONEX [Suspect]
     Indication: RHINITIS
     Route: 055
  5. TERAZOSIN [Concomitant]
     Indication: OEDEMA PERIPHERAL
     Dosage: ONGOING
     Route: 048
     Dates: start: 20110912
  6. TERAZOSIN [Concomitant]
     Indication: BENIGN PROSTATIC HYPERPLASIA
     Dosage: ONGOING
     Route: 048
     Dates: start: 20110912
  7. FERROUS SULFATE [Concomitant]
     Indication: IRON DEFICIENCY
     Dosage: ONGOING
     Route: 048
     Dates: start: 20120329
  8. METOPROLOL [Concomitant]
     Indication: DIZZINESS
     Dosage: ONGOING
     Route: 048
     Dates: start: 20120317
  9. FUROSEMIDE [Concomitant]
     Indication: DIZZINESS
     Dosage: ONGOING
     Route: 048
     Dates: start: 20120317
  10. ASPIRIN [Concomitant]

REACTIONS (1)
  - Oesophageal candidiasis [Recovering/Resolving]
